FAERS Safety Report 4848440-0 (Version None)
Quarter: 2005Q4

REPORT INFORMATION
  Report Type: 
  Country: None (occurrence: None)
  Receive Date: 20051208
  Receipt Date: 20051203
  Transmission Date: 20060501
  Serious: Yes (Disabling)
  Sender: FDA-Public Use
  Company Number: GB-GLAXOSMITHKLINE-B0402626A

PATIENT
  Age: 39 Year
  Sex: Female

DRUGS (1)
  1. PAROXETINE HCL [Suspect]
     Indication: DEPRESSION
     Dosage: 20MG PER DAY
     Route: 048
     Dates: start: 20051011, end: 20051109

REACTIONS (5)
  - ERYTHEMA [None]
  - FACE OEDEMA [None]
  - MOUTH ULCERATION [None]
  - PERIORBITAL OEDEMA [None]
  - URTICARIA [None]
